FAERS Safety Report 5936587-7 (Version None)
Quarter: 2008Q4

REPORT INFORMATION
  Report Type: 
  Country: None (occurrence: None)
  Receive Date: 20081030
  Receipt Date: 20081017
  Transmission Date: 20090506
  Serious: Yes (Death, Hospitalization)
  Sender: FDA-Public Use
  Company Number: GB-BAUSCH-2008BL004475

PATIENT
  Age: 18 Year
  Sex: Female

DRUGS (5)
  1. PREDNISOLONE [Suspect]
     Indication: CHEMOTHERAPY
  2. CYCLOPHOSPHAMIDE [Suspect]
     Indication: CHEMOTHERAPY
  3. DOXORUBICIN HCL [Suspect]
     Indication: CHEMOTHERAPY
     Route: 042
  4. RITUXIMAB [Suspect]
     Indication: CHEMOTHERAPY
  5. VINCRISTINE [Suspect]
     Indication: CHEMOTHERAPY

REACTIONS (2)
  - CARDIAC ARREST [None]
  - CYTOTOXIC CARDIOMYOPATHY [None]
